FAERS Safety Report 8049097-0 (Version None)
Quarter: 2012Q1

REPORT INFORMATION
  Report Type: 
  Country: None (occurrence: None)
  Receive Date: 20120117
  Receipt Date: 20120112
  Transmission Date: 20120608
  Serious: Yes (Other)
  Sender: FDA-Public Use
  Company Number: US-AMGEN-USASP2010012300

PATIENT
  Age: 54 Year
  Sex: Female

DRUGS (2)
  1. ENBREL [Suspect]
     Indication: PSORIASIS
     Dosage: 50 MG, 2 TIMES/WK
     Route: 058
     Dates: start: 20091030
  2. METHOTREXATE [Concomitant]
     Dosage: 4 MG, UNK
     Dates: start: 20101101

REACTIONS (3)
  - URINARY TRACT INFECTION [None]
  - METAMORPHOPSIA [None]
  - VISUAL IMPAIRMENT [None]
